FAERS Safety Report 6404804-5 (Version None)
Quarter: 2009Q4

REPORT INFORMATION
  Report Type: 
  Country: None (occurrence: None)
  Receive Date: 20091016
  Receipt Date: 20091006
  Transmission Date: 20100525
  Serious: Yes (Other)
  Sender: FDA-Public Use
  Company Number: CH-GILEAD-2009-0022486

PATIENT
  Sex: Male
  Weight: 80 kg

DRUGS (5)
  1. VIREAD [Suspect]
     Indication: HIV INFECTION
     Route: 048
     Dates: start: 20030301, end: 20050712
  2. STOCRIN [Concomitant]
     Indication: ANTIRETROVIRAL THERAPY
     Route: 048
     Dates: start: 19981101, end: 20051101
  3. ZIAGEN [Concomitant]
     Indication: ANTIRETROVIRAL THERAPY
     Route: 048
     Dates: start: 19991001
  4. ZESTORETIC [Concomitant]
     Indication: HYPERTENSION
     Route: 048
     Dates: start: 19990101, end: 20071101
  5. LANSOPRAZOLE [Concomitant]
     Route: 048
     Dates: start: 20000501, end: 20071101

REACTIONS (1)
  - FOOT FRACTURE [None]
